FAERS Safety Report 25635630 (Version 1)
Quarter: 2025Q3

REPORT INFORMATION
  Report Type: Other
  Country: US (occurrence: US)
  Receive Date: 20250802
  Receipt Date: 20250802
  Transmission Date: 20251021
  Serious: Yes (Hospitalization)
  Sender: ANI
  Company Number: US-ANIPHARMA-023917

PATIENT
  Sex: Female

DRUGS (25)
  1. LEUCOVORIN [Suspect]
     Active Substance: LEUCOVORIN\LEUCOVORIN CALCIUM
     Indication: Adenocarcinoma pancreas
  2. CARBOPLATIN [Concomitant]
     Active Substance: CARBOPLATIN
     Indication: Ovarian cancer stage III
  3. PACLITAXEL [Concomitant]
     Active Substance: PACLITAXEL
     Indication: Ovarian cancer stage III
  4. PEGFILGRASTIM [Concomitant]
     Active Substance: PEGFILGRASTIM
     Indication: Ovarian cancer stage III
  5. FLUOROURACIL [Concomitant]
     Active Substance: FLUOROURACIL
     Indication: Adenocarcinoma pancreas
  6. OXALIPLATIN [Concomitant]
     Active Substance: OXALIPLATIN
     Indication: Adenocarcinoma pancreas
  7. IRINOTECAN [Concomitant]
     Active Substance: IRINOTECAN
     Indication: Adenocarcinoma pancreas
  8. immune-globulin [Concomitant]
     Indication: Pulmonary toxicity
  9. RITUXIMAB [Concomitant]
     Active Substance: RITUXIMAB
     Indication: Pulmonary toxicity
  10. immune-globulin [Concomitant]
     Indication: Respiratory failure
  11. immune-globulin [Concomitant]
     Indication: Respiratory distress
  12. LEUCOVORIN [Suspect]
     Active Substance: LEUCOVORIN\LEUCOVORIN CALCIUM
     Indication: Adenocarcinoma pancreas
  13. FLUOROURACIL [Concomitant]
     Active Substance: FLUOROURACIL
     Indication: Adenocarcinoma pancreas
  14. FLUOROURACIL [Concomitant]
     Active Substance: FLUOROURACIL
     Indication: Adenocarcinoma pancreas
  15. OXALIPLATIN [Concomitant]
     Active Substance: OXALIPLATIN
     Indication: Adenocarcinoma pancreas
  16. OXALIPLATIN [Concomitant]
     Active Substance: OXALIPLATIN
     Indication: Adenocarcinoma pancreas
  17. IRINOTECAN [Concomitant]
     Active Substance: IRINOTECAN
     Indication: Adenocarcinoma pancreas
  18. IRINOTECAN [Concomitant]
     Active Substance: IRINOTECAN
     Indication: Adenocarcinoma pancreas
  19. immune-globulin [Concomitant]
     Indication: Interstitial lung disease
  20. immune-globulin [Concomitant]
     Indication: Hypersensitivity pneumonitis
  21. RITUXIMAB [Concomitant]
     Active Substance: RITUXIMAB
     Indication: Respiratory failure
  22. RITUXIMAB [Concomitant]
     Active Substance: RITUXIMAB
     Indication: Respiratory distress
  23. RITUXIMAB [Concomitant]
     Active Substance: RITUXIMAB
     Indication: Interstitial lung disease
  24. RITUXIMAB [Concomitant]
     Active Substance: RITUXIMAB
     Indication: Hypersensitivity pneumonitis
  25. LEUCOVORIN [Suspect]
     Active Substance: LEUCOVORIN\LEUCOVORIN CALCIUM
     Indication: Adenocarcinoma pancreas

REACTIONS (1)
  - Type IV hypersensitivity reaction [Unknown]
